FAERS Safety Report 4447883-7 (Version None)
Quarter: 2004Q3

REPORT INFORMATION
  Report Type: 
  Country: None (occurrence: None)
  Receive Date: 20040913
  Receipt Date: 20040908
  Transmission Date: 20050211
  Serious: Yes (Death, Other)
  Sender: FDA-Public Use
  Company Number: PHBS2004VE11946

PATIENT
  Age: 54 Year
  Sex: Male

DRUGS (8)
  1. MYFORTIC [Suspect]
     Indication: RENAL TRANSPLANT
     Dosage: 1440 MG/DAY
     Route: 048
     Dates: start: 20020923
  2. ALTACE [Concomitant]
     Dosage: 5 MG, BID
     Route: 048
     Dates: start: 20031115
  3. NORVASC [Concomitant]
     Dosage: 5 MG, BID
     Route: 048
     Dates: start: 20030115
  4. LASIX [Concomitant]
     Dosage: 40 MG, QD
     Route: 048
     Dates: start: 20031209
  5. AMIODARONE HCL [Concomitant]
     Dosage: 200 MG, QD
     Route: 048
     Dates: start: 20031126
  6. FOSAMAX [Concomitant]
     Dosage: 70 MG, QW
     Route: 048
     Dates: start: 20031126
  7. DILATREND [Concomitant]
     Dosage: 6.25 MG, QD
     Route: 048
     Dates: start: 20031126
  8. ACYCLOVIR [Concomitant]

REACTIONS (13)
  - ASTHENIA [None]
  - CRANIAL NERVE DISORDER [None]
  - DYSPHAGIA [None]
  - FATIGUE [None]
  - HAEMOGLOBIN DECREASED [None]
  - HERPES ZOSTER [None]
  - HERPETIC STOMATITIS [None]
  - INCONTINENCE [None]
  - MALNUTRITION [None]
  - MOBILITY DECREASED [None]
  - OEDEMA PERIPHERAL [None]
  - PULMONARY EMBOLISM [None]
  - WEIGHT DECREASED [None]
